FAERS Safety Report 5214164-3 (Version None)
Quarter: 2007Q1

REPORT INFORMATION
  Report Type: 
  Country: None (occurrence: None)
  Receive Date: 20070122
  Receipt Date: 20070110
  Transmission Date: 20070707
  Serious: Yes (Life-Threatening, Other)
  Sender: FDA-Public Use
  Company Number: US-AVENTIS-200710206US

PATIENT
  Sex: Male

DRUGS (12)
  1. LOVENOX [Suspect]
     Indication: ACUTE CORONARY SYNDROME
     Dates: start: 20070107, end: 20070108
  2. LOVENOX [Suspect]
     Dates: start: 20070108, end: 20070108
  3. TYLENOL [Concomitant]
     Dosage: DOSE: UNK
  4. ASPIRIN [Concomitant]
     Dosage: DOSE: UNK
  5. PLAVIX [Concomitant]
     Dosage: DOSE: UNK
  6. TRICOR                             /00090101/ [Concomitant]
     Dosage: DOSE: UNK
  7. LEVOTHYROXINE SODIUM [Concomitant]
     Dosage: DOSE: UNK
  8. LOPRESSOR [Concomitant]
     Dosage: DOSE: UNK
  9. NIACIN [Concomitant]
     Dosage: DOSE: UNK
  10. NITROGLYCERIN [Concomitant]
     Dosage: DOSE: UNK
  11. CRESTOR [Concomitant]
     Dosage: DOSE: UNK
  12. MAVIK [Concomitant]
     Dosage: DOSE: UNK

REACTIONS (6)
  - BLOOD PRESSURE SYSTOLIC DECREASED [None]
  - BRADYCARDIA [None]
  - CARDIAC ARREST [None]
  - CHEST DISCOMFORT [None]
  - FEELING ABNORMAL [None]
  - PALLOR [None]
